FAERS Safety Report 20073280 (Version 1)
Quarter: 2021Q4

REPORT INFORMATION
  Report Type: Spontaneous
  Country: US (occurrence: None)
  Receive Date: 20211116
  Receipt Date: 20211116
  Transmission Date: 20220304
  Serious: No
  Sender: FDA-Public Use
  Company Number: US-Merck Healthcare KGaA-9279439

PATIENT
  Sex: Female

DRUGS (1)
  1. REBIF [Suspect]
     Active Substance: INTERFERON BETA-1A
     Indication: Multiple sclerosis
     Route: 058
     Dates: start: 201607

REACTIONS (5)
  - Dizziness [Unknown]
  - Fall [Unknown]
  - Pain in extremity [Unknown]
  - Tremor [Unknown]
  - Urinary incontinence [Unknown]
